FAERS Safety Report 18894341 (Version 8)
Quarter: 2021Q2

REPORT INFORMATION
  Report Type: Spontaneous
  Country: US (occurrence: US)
  Receive Date: 20210215
  Receipt Date: 20210623
  Transmission Date: 20210717
  Serious: Yes (Other)
  Sender: FDA-Public Use
  Company Number: US-PFIZER INC-2021133417

PATIENT
  Age: 86 Year
  Sex: Female
  Weight: 67.1 kg

DRUGS (2)
  1. PREMARIN [Suspect]
     Active Substance: ESTROGENS, CONJUGATED
     Dosage: 1.5 G, 3X/WEEKLY
     Route: 067
  2. PREMARIN [Suspect]
     Active Substance: ESTROGENS, CONJUGATED
     Dosage: 1.5 G, 2X/WEEK
     Route: 067

REACTIONS (7)
  - Frustration tolerance decreased [Unknown]
  - Fall [Unknown]
  - Off label use [Unknown]
  - Neuropathy peripheral [Unknown]
  - Mental disorder [Unknown]
  - Hypertension [Unknown]
  - Gait disturbance [Unknown]
